FAERS Safety Report 5778639-0 (Version None)
Quarter: 2008Q2

REPORT INFORMATION
  Report Type: 
  Country: None (occurrence: None)
  Receive Date: 20080601
  Receipt Date: 20080108
  Transmission Date: 20081010
  Serious: No
  Sender: FDA-Public Use
  Company Number: US200801001612

PATIENT
  Age: 51 Year
  Sex: Male

DRUGS (4)
  1. BYETTA [Suspect]
     Indication: INSULIN-REQUIRING TYPE 2 DIABETES MELLITUS
     Dosage: 5 UG, 2/D, SUBCUTANEOUS
     Route: 058
     Dates: start: 20071101, end: 20071201
  2. GLUCOPHAGE [Concomitant]
  3. AVANDIA [Concomitant]
  4. LANTUS [Concomitant]

REACTIONS (4)
  - INCORRECT DOSE ADMINISTERED [None]
  - MALAISE [None]
  - NAUSEA [None]
  - STOMACH DISCOMFORT [None]
